FAERS Safety Report 4682921-8 (Version None)
Quarter: 2005Q2

REPORT INFORMATION
  Report Type: 
  Country: None (occurrence: None)
  Receive Date: 20050602
  Receipt Date: 20050127
  Transmission Date: 20051028
  Serious: No
  Sender: FDA-Public Use
  Company Number: US_0502112357

PATIENT
  Age: 42 Year
  Sex: Female

DRUGS (2)
  1. CYMBALTA [Suspect]
     Dosage: 60 MG
     Dates: start: 20050125
  2. CONCERTA [Concomitant]

REACTIONS (1)
  - BLOOD PRESSURE INCREASED [None]
